FAERS Safety Report 6518181-2 (Version None)
Quarter: 2009Q4

REPORT INFORMATION
  Report Type: 
  Country: None (occurrence: None)
  Receive Date: 20091223
  Receipt Date: 20091223
  Transmission Date: 20100525
  Serious: No
  Sender: FDA-Public Use
  Company Number: None

PATIENT
  Age: 73 Year
  Sex: Female
  Weight: 71.6683 kg

DRUGS (1)
  1. ZICAM COLD REMEDY RAPID MELTS WITH VITAMIN C [Suspect]
     Dosage: TID
     Dates: start: 20091204, end: 20091204

REACTIONS (1)
  - DYSGEUSIA [None]
